FAERS Safety Report 9283641 (Version 2)
Quarter: 2013Q2

REPORT INFORMATION
  Report Type: Spontaneous
  Country: DE (occurrence: None)
  Receive Date: 20130506
  Receipt Date: 20130506
  Transmission Date: 20140414
  Serious: Yes (Hospitalization)
  Sender: FDA-Public Use
  Company Number: AUR-APL-2013-03493

PATIENT
  Age: 63 Year
  Sex: Female
  Weight: 100 kg

DRUGS (8)
  1. METFORMIN [Suspect]
     Indication: TYPE 2 DIABETES MELLITUS
     Dosage: 2000 MG (1000 MG, 2 IN 1 D), ORAL
     Route: 048
     Dates: start: 20101201, end: 20110512
  2. ASS  100 (ACETYLSALICYLIC ACID) [Concomitant]
  3. RAMIPRIL (RAMIPRIL) [Concomitant]
  4. FUROSEMID(FUROSEMIDE) [Concomitant]
  5. LOSARTAN (LOSARTAN) [Concomitant]
  6. ALLOPURINOL [Concomitant]
  7. AMLODIPIN(AMLODIPINE) [Concomitant]
  8. DOXEPIN (DOXEPIN) (DOXEPIN) [Concomitant]

REACTIONS (4)
  - Hyperkalaemia [None]
  - Lactic acidosis [None]
  - Renal failure acute [None]
  - Haemodialysis [None]
